FAERS Safety Report 22955582 (Version 5)
Quarter: 2024Q1

REPORT INFORMATION
  Report Type: Spontaneous
  Country: US (occurrence: US)
  Receive Date: 20230918
  Receipt Date: 20240117
  Transmission Date: 20240409
  Serious: No
  Sender: FDA-Public Use
  Company Number: US-SANDOZ-SDZ2023US029655

PATIENT
  Sex: Male

DRUGS (4)
  1. OMNITROPE [Suspect]
     Active Substance: SOMATROPIN
     Indication: Hypopituitarism
     Dosage: 1.4 MG 2 DOSE EVERY N/A N/A
     Route: 003
     Dates: start: 20230830, end: 20230830
  2. OMNITROPE [Suspect]
     Active Substance: SOMATROPIN
     Indication: Hypopituitarism
     Dosage: 1.4 MG 2 DOSE EVERY N/A N/A
     Route: 003
     Dates: start: 20230830, end: 20230830
  3. OMNITROPE [Suspect]
     Active Substance: SOMATROPIN
     Indication: Hypopituitarism
     Dosage: 1.4 MG 2 DOSE EVERY N/A N/A
     Route: 003
     Dates: start: 20230830, end: 20230830
  4. OMNITROPE [Suspect]
     Active Substance: SOMATROPIN
     Indication: Hypopituitarism
     Dosage: 1.4 MG 2 DOSE EVERY N/A N/A
     Route: 003
     Dates: start: 20230830, end: 20230830

REACTIONS (5)
  - Device issue [Unknown]
  - Product dose omission issue [Unknown]
  - Device deployment issue [Unknown]
  - Needle issue [Unknown]
  - Device mechanical issue [Unknown]
